FAERS Safety Report 23069038 (Version 1)
Quarter: 2023Q4

REPORT INFORMATION
  Report Type: Spontaneous
  Country: KR (occurrence: KR)
  Receive Date: 20231016
  Receipt Date: 20231016
  Transmission Date: 20240110
  Serious: Yes (Other)
  Sender: FDA-Public Use
  Company Number: KR-009507513-2310KOR003512

PATIENT
  Sex: Male

DRUGS (2)
  1. KEYTRUDA [Suspect]
     Active Substance: PEMBROLIZUMAB
     Dosage: DOSAGE INTERVAL: 1 DAY
     Route: 042
     Dates: start: 20220914, end: 20220914
  2. PACLITAXEL [Suspect]
     Active Substance: PACLITAXEL
     Dosage: DOSAGE INTERVAL: 1 DAY
     Route: 042
     Dates: start: 20220914, end: 20220914

REACTIONS (1)
  - Leukopenia [Recovered/Resolved]

NARRATIVE: CASE EVENT DATE: 20220926
